FAERS Safety Report 15880909 (Version 1)
Quarter: 2019Q1

REPORT INFORMATION
  Report Type: Spontaneous
  Country: GB (occurrence: GB)
  Receive Date: 20190128
  Receipt Date: 20190128
  Transmission Date: 20190417
  Serious: Yes (Other)
  Sender: FDA-Public Use
  Company Number: GB-PFIZER INC-2019029059

PATIENT
  Age: 34 Year
  Sex: Female

DRUGS (1)
  1. VENLAFAXINE HCL [Suspect]
     Active Substance: VENLAFAXINE HYDROCHLORIDE
     Indication: PANIC REACTION
     Dosage: UNK
     Route: 048
     Dates: start: 20181219, end: 20181224

REACTIONS (7)
  - Headache [Recovered/Resolved]
  - Dissociation [Recovered/Resolved]
  - Dermatitis allergic [Not Recovered/Not Resolved]
  - Pruritus [Not Recovered/Not Resolved]
  - Dizziness [Recovered/Resolved]
  - Erythema [Not Recovered/Not Resolved]
  - Mydriasis [Recovered/Resolved]

NARRATIVE: CASE EVENT DATE: 20181223
